FAERS Safety Report 21850423 (Version 1)
Quarter: 2023Q1

REPORT INFORMATION
  Report Type: Spontaneous
  Country: BR (occurrence: BR)
  Receive Date: 20230111
  Receipt Date: 20230111
  Transmission Date: 20230418
  Serious: Yes (Other)
  Sender: FDA-Public Use
  Company Number: BR-ADMA BIOLOGICS INC.-BR-2022ADM000110

PATIENT
  Age: 64 Year
  Sex: Male

DRUGS (1)
  1. HUMAN IMMUNOGLOBULIN G [Suspect]
     Active Substance: HUMAN IMMUNOGLOBULIN G
     Indication: Chronic lymphocytic leukaemia
     Dosage: UNK, MONTHLY
     Route: 042

REACTIONS (2)
  - Eczema [Recovering/Resolving]
  - Off label use [Unknown]
